FAERS Safety Report 19714399 (Version 1)
Quarter: 2021Q3

REPORT INFORMATION
  Report Type: Spontaneous
  Country: US (occurrence: US)
  Receive Date: 20210818
  Receipt Date: 20210818
  Transmission Date: 20211014
  Serious: No
  Sender: FDA-Public Use
  Company Number: US-JNJFOC-20210830416

PATIENT
  Age: 81 Year
  Sex: Female
  Weight: 63.5 kg

DRUGS (14)
  1. COMBIVENT [Concomitant]
     Active Substance: ALBUTEROL SULFATE\IPRATROPIUM BROMIDE
     Indication: COUGH
     Route: 065
  2. COVID?19 VACCINE [Concomitant]
     Indication: COVID-19 IMMUNISATION
     Dosage: RECEIVED BOTH DOSES OF THE VACCINE BY INJECTION?1ST DOSE
     Route: 065
     Dates: start: 20210215
  3. COVID?19 VACCINE [Concomitant]
     Dosage: 1ST DOSE?ANATOMICAL LOCATION: RIGHT ARM
     Route: 065
     Dates: start: 20210305
  4. GABAPENTIN. [Concomitant]
     Active Substance: GABAPENTIN
     Indication: NEUROMYOPATHY
     Dosage: 300MG; TAKE TWO DAILY BY MOUTH?KNEE REPLACED AND INTO THE KNEE THREE TIMES TO FIX, IT GOT LOOSE; TAK
     Route: 048
  5. OMEPRAZOLE. [Concomitant]
     Active Substance: OMEPRAZOLE
     Indication: OESOPHAGEAL DISORDER
     Dosage: 40MG; TAKE ONCE DAILY BY MOUTH?TAKING FOR YEARS
     Route: 048
  6. CODEINE [Concomitant]
     Active Substance: CODEINE
     Indication: COUGH
     Route: 065
  7. ATROVENT [Concomitant]
     Active Substance: IPRATROPIUM BROMIDE
     Indication: COUGH
     Dosage: BY WESTWARD
     Route: 065
  8. KETOCONAZOLE. [Concomitant]
     Active Substance: KETOCONAZOLE
     Indication: RASH
     Route: 065
  9. PROMETHAZINE WITH CODEINE [Concomitant]
     Active Substance: CODEINE PHOSPHATE\PROMETHAZINE HYDROCHLORIDE
     Indication: COUGH
     Route: 065
     Dates: start: 2021
  10. FLUTICASONE PROPIONATE. [Concomitant]
     Active Substance: FLUTICASONE PROPIONATE
     Indication: COUGH
     Route: 065
  11. ZYRTEC [Suspect]
     Active Substance: CETIRIZINE HYDROCHLORIDE
     Indication: COUGH
     Route: 065
     Dates: start: 2021
  12. ATORVASTATIN [Concomitant]
     Active Substance: ATORVASTATIN
     Indication: BLOOD CHOLESTEROL
     Dosage: 20MG TAKE ONCE DAILY BY MOUTH?TAKING FOR A FEW YEARS
     Route: 048
  13. VALSARTAN. [Concomitant]
     Active Substance: VALSARTAN
     Indication: HYPERTENSION
     Dosage: 150MG; TAKE ONCE DAILY BY MOUTH?TAKING FOR A FEW YEARS
     Route: 048
  14. METOPROLOL. [Concomitant]
     Active Substance: METOPROLOL
     Indication: HYPERTENSION
     Dosage: 25MG; TAKE ONCE DAILY BY MOUTH?FEW YEARS
     Route: 048

REACTIONS (1)
  - Product use in unapproved indication [Unknown]

NARRATIVE: CASE EVENT DATE: 2021
